FAERS Safety Report 8829234 (Version 1)
Quarter: 2012Q4

REPORT INFORMATION
  Report Type: 
  Country: US (occurrence: US)
  Receive Date: 20121008
  Receipt Date: 20121008
  Transmission Date: 20130627
  Serious: No
  Sender: FDA-Public Use
  Company Number: US-ASTRAZENECA-2012SE74778

PATIENT
  Sex: Female

DRUGS (1)
  1. SEROQUEL [Suspect]
     Indication: GENERALISED ANXIETY DISORDER
     Dosage: GENERIC, 250 MILLIGRAMS BID
     Route: 048
     Dates: start: 20120702

REACTIONS (5)
  - Blood pressure abnormal [Unknown]
  - Hypoglycaemia [Unknown]
  - Akathisia [Unknown]
  - Heart rate increased [Unknown]
  - Off label use [Unknown]
